FAERS Safety Report 9732567 (Version 2)
Quarter: 2013Q4

REPORT INFORMATION
  Report Type: Spontaneous
  Country: US (occurrence: US)
  Receive Date: 20131204
  Receipt Date: 20131206
  Transmission Date: 20140711
  Serious: Yes (Life-Threatening, Hospitalization, Disabling)
  Sender: FDA-Public Use
  Company Number: US-BAYER-2013-147065

PATIENT
  Age: 38 Year
  Sex: Female
  Weight: 111.11 kg

DRUGS (14)
  1. YAZ [Suspect]
  2. YASMIN [Suspect]
  3. BEYAZ [Suspect]
  4. SAFYRAL [Suspect]
  5. OCELLA [Suspect]
  6. ZARAH [Suspect]
  7. GIANVI [Suspect]
  8. CLINDAMYCIN [Concomitant]
  9. EFFEXOR XR [Concomitant]
     Dosage: 150 MG, ONCE
     Route: 048
  10. XYZAL [Concomitant]
     Dosage: 5 MG, UNK
     Route: 048
  11. VERAMYST [Concomitant]
     Dosage: 27.5 ?G, UNK
     Route: 045
  12. ALBUTEROL [Concomitant]
     Route: 045
  13. VENLAFAXINE [Concomitant]
  14. VICODIN [Concomitant]

REACTIONS (8)
  - Pulmonary embolism [None]
  - Injury [None]
  - Emotional distress [None]
  - Anhedonia [None]
  - Anxiety [None]
  - General physical health deterioration [None]
  - Pain [None]
  - Pain [None]
